FAERS Safety Report 19055844 (Version 1)
Quarter: 2021Q1

REPORT INFORMATION
  Report Type: Spontaneous
  Country: CN (occurrence: CN)
  Receive Date: 20210324
  Receipt Date: 20210324
  Transmission Date: 20210420
  Serious: Yes (Other)
  Sender: FDA-Public Use
  Company Number: CN-PFIZER INC-2021276612

PATIENT
  Sex: Male
  Weight: 62.5 kg

DRUGS (1)
  1. LINEZOLID. [Suspect]
     Active Substance: LINEZOLID
     Indication: ENDOCARDITIS
     Dosage: 600 MG, 2X/DAY
     Route: 048
     Dates: start: 20210228, end: 20210308

REACTIONS (3)
  - Hepatic failure [Unknown]
  - Disease progression [Unknown]
  - Endocarditis [Unknown]

NARRATIVE: CASE EVENT DATE: 20210307
